FAERS Safety Report 11073972 (Version 1)
Quarter: 2015Q2

REPORT INFORMATION
  Report Type: Spontaneous
  Country: IT (occurrence: IT)
  Receive Date: 20150429
  Receipt Date: 20150429
  Transmission Date: 20150821
  Serious: Yes (Other)
  Sender: FDA-Public Use
  Company Number: IT-AUROBINDO-AUR-APL-2015-03728

PATIENT
  Age: 29 Year
  Sex: Female

DRUGS (10)
  1. FLUCONAZOLE 100MG [Interacting]
     Active Substance: FLUCONAZOLE
     Indication: ORAL CANDIDIASIS
     Dosage: 100 MG, DAILY
     Route: 048
  2. DROSPIRENONE W/ETHINYLESTRADIOL [Interacting]
     Active Substance: DROSPIRENONE\ETHINYL ESTRADIOL
     Indication: PRODUCT USED FOR UNKNOWN INDICATION
     Dosage: 0.03 MG/3 MG, DAILY
     Route: 048
  3. MICONAZOLE [Interacting]
     Active Substance: MICONAZOLE
     Indication: ORAL CANDIDIASIS
     Dosage: 20 MG, TWO TIMES A DAY
     Route: 048
  4. ARIPIPRAZOLE. [Suspect]
     Active Substance: ARIPIPRAZOLE
     Indication: PSYCHOTIC DISORDER
     Dosage: 30 MG, DAILY
     Route: 065
  5. CLOZAPINE. [Suspect]
     Active Substance: CLOZAPINE
     Dosage: 225 MG, DAILY
     Route: 048
  6. OLANZAPINE 10MG [Suspect]
     Active Substance: OLANZAPINE
     Indication: SCHIZOAFFECTIVE DISORDER
     Dosage: 10 MG, DAILY
     Route: 065
  7. OLANZAPINE 10MG [Suspect]
     Active Substance: OLANZAPINE
     Dosage: 20 MG, DAILY
     Route: 048
  8. HALOPERIDOL. [Suspect]
     Active Substance: HALOPERIDOL
     Indication: SCHIZOAFFECTIVE DISORDER
     Dosage: 2 MG, DAILY
     Route: 065
  9. HALOPERIDOL. [Suspect]
     Active Substance: HALOPERIDOL
     Dosage: 9 MG, DAILY
     Route: 048
  10. CLOZAPINE. [Suspect]
     Active Substance: CLOZAPINE
     Indication: PSYCHOTIC DISORDER
     Dosage: 25 MG, DAILY
     Route: 048

REACTIONS (21)
  - Pericardial effusion [Recovered/Resolved]
  - C-reactive protein increased [Recovered/Resolved]
  - Sinus tachycardia [Recovered/Resolved]
  - Drug interaction [Recovered/Resolved]
  - Toxicity to various agents [Recovered/Resolved]
  - Palpitations [Recovered/Resolved]
  - Heart sounds abnormal [Recovered/Resolved]
  - Drug ineffective [Recovered/Resolved]
  - Blood pressure increased [Recovered/Resolved]
  - Vomiting [Recovered/Resolved]
  - Antipsychotic drug level increased [Recovered/Resolved]
  - Catatonia [Recovered/Resolved]
  - Hallucination [Recovered/Resolved]
  - Pericarditis [Recovered/Resolved]
  - Tachycardia [Recovered/Resolved]
  - Nausea [Recovered/Resolved]
  - Treatment noncompliance [Recovered/Resolved]
  - Electrocardiogram T wave inversion [Recovered/Resolved]
  - Eosinophilia [Recovered/Resolved]
  - Delusion [Recovered/Resolved]
  - Electrocardiogram ST segment depression [Recovered/Resolved]
